FAERS Safety Report 24647414 (Version 1)
Quarter: 2024Q4

REPORT INFORMATION
  Report Type: Spontaneous
  Country: US (occurrence: US)
  Receive Date: 20241121
  Receipt Date: 20241121
  Transmission Date: 20250115
  Serious: No
  Sender: ALVOGEN
  Company Number: US-ALVOGEN-2024094834

PATIENT
  Sex: Female

DRUGS (2)
  1. TERIPARATIDE [Suspect]
     Active Substance: TERIPARATIDE
     Indication: Osteoporosis
     Dosage: 20 MCG, DAILY ?STRENGTH: 250 MCG/ML
     Route: 058
     Dates: start: 202302
  2. DUPIXENT [Concomitant]
     Active Substance: DUPILUMAB
     Indication: Dermatitis atopic
     Dosage: DUPIXENT SYR (2-PK)

REACTIONS (3)
  - Inner ear disorder [Unknown]
  - Vertigo [Recovered/Resolved]
  - Injection site bruising [Unknown]
